FAERS Safety Report 22048785 (Version 1)
Quarter: 2023Q1

REPORT INFORMATION
  Report Type: Spontaneous
  Country: CN (occurrence: CN)
  Receive Date: 20230301
  Receipt Date: 20230301
  Transmission Date: 20230418
  Serious: Yes (Other)
  Sender: FDA-Public Use
  Company Number: CN-ORGANON-O2302CHN002421

PATIENT
  Age: 34 Year
  Sex: Male

DRUGS (3)
  1. PROSCAR [Suspect]
     Active Substance: FINASTERIDE
     Indication: Prostatitis
     Dosage: 5 MG, QD
     Route: 048
     Dates: start: 20221003, end: 20221218
  2. PROSCAR [Suspect]
     Active Substance: FINASTERIDE
     Dosage: 5 MG, QD
     Route: 048
     Dates: start: 20221229, end: 20230128
  3. FINASTERIDE [Suspect]
     Active Substance: FINASTERIDE
     Indication: Prostatitis
     Dosage: 5 MG, QD
     Route: 048
     Dates: start: 20221219, end: 20221228

REACTIONS (6)
  - Blood bilirubin increased [Recovering/Resolving]
  - Hepatic enzyme increased [Recovering/Resolving]
  - Abdominal distension [Recovering/Resolving]
  - Nausea [Recovering/Resolving]
  - Pruritus [Recovering/Resolving]
  - Product use in unapproved indication [Unknown]

NARRATIVE: CASE EVENT DATE: 20221003
